FAERS Safety Report 5709538-8 (Version None)
Quarter: 2008Q2

REPORT INFORMATION
  Report Type: 
  Country: None (occurrence: None)
  Receive Date: 20080418
  Receipt Date: 20061204
  Transmission Date: 20081010
  Serious: Yes (Death)
  Sender: FDA-Public Use
  Company Number: GB-MERCK-0612GBR00015

PATIENT
  Age: 36 Year
  Sex: Female

DRUGS (1)
  1. ARAMINE [Suspect]
     Route: 051

REACTIONS (3)
  - ACUTE HEPATIC FAILURE [None]
  - DRUG INEFFECTIVE [None]
  - HYPOTENSION [None]
